FAERS Safety Report 16912748 (Version 2)
Quarter: 2019Q4

REPORT INFORMATION
  Report Type: Spontaneous
  Country: ES (occurrence: ES)
  Receive Date: 20191014
  Receipt Date: 20191018
  Transmission Date: 20200122
  Serious: Yes (Death, Hospitalization)
  Sender: FDA-Public Use
  Company Number: ES-ACCORD-157372

PATIENT
  Age: 84 Year
  Sex: Male

DRUGS (1)
  1. METHOTREXATE. [Suspect]
     Active Substance: METHOTREXATE
     Indication: RHEUMATOID ARTHRITIS
     Dosage: 10 MG/8H
     Route: 048
     Dates: start: 20190906, end: 20190908

REACTIONS (2)
  - Pancytopenia [Fatal]
  - Wrong schedule [Fatal]

NARRATIVE: CASE EVENT DATE: 20190906
